FAERS Safety Report 8463337 (Version 3)
Quarter: 2012Q4

REPORT INFORMATION
  Report Type: 
  Country: JP (occurrence: JP)
  Receive Date: 20120316
  Receipt Date: 20120926
  Transmission Date: 20130627
  Serious: Yes (Death)
  Sender: FDA-Public Use
  Company Number: JP-ROCHE-1048596

PATIENT
  Age: 82 Year
  Sex: Female

DRUGS (2)
  1. ACTIVACIN [Suspect]
     Indication: EMBOLIC STROKE
     Route: 042
     Dates: start: 20100915, end: 20100915
  2. EDARAVONE [Suspect]
     Indication: EMBOLIC STROKE
     Route: 065
     Dates: start: 20100915, end: 20100921

REACTIONS (1)
  - Haemorrhagic cerebral infarction [Fatal]
